FAERS Safety Report 5884488-5 (Version None)
Quarter: 2008Q3

REPORT INFORMATION
  Report Type: 
  Country: None (occurrence: None)
  Receive Date: 20080916
  Receipt Date: 20080904
  Transmission Date: 20090109
  Serious: Yes (Other)
  Sender: FDA-Public Use
  Company Number: US-JNJFOC-20080901846

PATIENT
  Sex: Female
  Weight: 81.65 kg

DRUGS (2)
  1. DURAGESIC-100 [Suspect]
     Indication: NEURALGIA
     Route: 062
  2. UNSPECIFIED MEDICATIONS [Concomitant]

REACTIONS (2)
  - ADDISON'S DISEASE [None]
  - WRONG TECHNIQUE IN DRUG USAGE PROCESS [None]
